FAERS Safety Report 4355786-1 (Version None)
Quarter: 2004Q2

REPORT INFORMATION
  Report Type: 
  Country: None (occurrence: None)
  Receive Date: 20040505
  Receipt Date: 20040422
  Transmission Date: 20050107
  Serious: Yes (Death, Other)
  Sender: FDA-Public Use
  Company Number: 2004020298

PATIENT
  Age: 63 Year
  Sex: Male
  Weight: 113.3993 kg

DRUGS (4)
  1. VIAGRA [Suspect]
     Indication: ERECTILE DYSFUNCTION
     Dosage: 50 MG (ONCE), ORAL
     Route: 048
     Dates: start: 20031228
  2. FUROSEMIDE [Concomitant]
  3. SPIRONOLACTONE [Concomitant]
  4. OXYGEN (OXYGEN) [Concomitant]

REACTIONS (21)
  - AORTIC ATHEROSCLEROSIS [None]
  - ARTERIOSCLEROSIS [None]
  - ATELECTASIS [None]
  - CARDIAC FAILURE ACUTE [None]
  - CARDIAC FAILURE CONGESTIVE [None]
  - CARDIOMEGALY [None]
  - CEREBRAL ATHEROSCLEROSIS [None]
  - CHRONIC OBSTRUCTIVE AIRWAYS DISEASE [None]
  - COR PULMONALE CHRONIC [None]
  - CORONARY ARTERY ATHEROSCLEROSIS [None]
  - DIZZINESS [None]
  - DYSKINESIA [None]
  - EMPHYSEMA [None]
  - FOAMING AT MOUTH [None]
  - HYPERTENSIVE HEART DISEASE [None]
  - PERICARDITIS ADHESIVE [None]
  - PLEURAL FIBROSIS [None]
  - PULMONARY ALVEOLAR HAEMORRHAGE [None]
  - PULMONARY CONGESTION [None]
  - RESPIRATORY ARREST [None]
  - VENTRICULAR HYPERTROPHY [None]
